FAERS Safety Report 7581089-8 (Version None)
Quarter: 2011Q2

REPORT INFORMATION
  Report Type: 
  Country: None (occurrence: None)
  Receive Date: 20110629
  Receipt Date: 20110622
  Transmission Date: 20111010
  Serious: Yes (Hospitalization)
  Sender: FDA-Public Use
  Company Number: US-B.I. PHARMACEUTICALS,INC./RIDGEFIELD-2011-BP-06714BP

PATIENT
  Age: 76 Year
  Sex: Male

DRUGS (5)
  1. CELEBREX [Suspect]
     Indication: ARTHRITIS
     Route: 048
     Dates: end: 20110601
  2. ASPIRIN [Suspect]
     Indication: ATRIAL FIBRILLATION
     Dosage: 81 MG
     Dates: end: 20110601
  3. ASPIRIN [Suspect]
     Dosage: 162 MG
     Dates: start: 20110601
  4. PRADAXA [Suspect]
     Indication: ATRIAL FIBRILLATION
     Dosage: 300 MG
     Route: 048
     Dates: start: 20101201, end: 20110601
  5. LISINOPRIL [Concomitant]
     Indication: BLOOD PRESSURE INCREASED

REACTIONS (11)
  - MELAENA [None]
  - MOUTH HAEMORRHAGE [None]
  - ATRIAL FIBRILLATION [None]
  - HAEMOPTYSIS [None]
  - TOOTHACHE [None]
  - BLOOD COUNT ABNORMAL [None]
  - CONTUSION [None]
  - CONSTIPATION [None]
  - LARGE INTESTINAL HAEMORRHAGE [None]
  - DYSPNOEA [None]
  - HAEMORRHAGE [None]
